FAERS Safety Report 4342573-3 (Version None)
Quarter: 2004Q1

REPORT INFORMATION
  Report Type: 
  Country: None (occurrence: None)
  Receive Date: 20040213
  Receipt Date: 20031202
  Transmission Date: 20041129
  Serious: Yes (Death)
  Sender: FDA-Public Use
  Company Number: 353128

PATIENT
  Age: 54 Year
  Sex: Male

DRUGS (1)
  1. PEGASYS [Suspect]
     Dosage: SUBCUTANEOUS
     Route: 058
     Dates: end: 20031129

REACTIONS (1)
  - ACUTE CORONARY SYNDROME [None]
